FAERS Safety Report 6288746-4 (Version None)
Quarter: 2009Q3

REPORT INFORMATION
  Report Type: 
  Country: None (occurrence: None)
  Receive Date: 20090729
  Receipt Date: 20070403
  Transmission Date: 20100115
  Serious: Yes (Hospitalization, Other)
  Sender: FDA-Public Use
  Company Number: US-ASTRAZENECA-2006UW06953

PATIENT
  Age: 15705 Day
  Sex: Male
  Weight: 116.6 kg

DRUGS (40)
  1. SEROQUEL [Suspect]
     Indication: PSYCHOTIC DISORDER
     Route: 048
     Dates: start: 20001001, end: 20030101
  2. SEROQUEL [Suspect]
     Indication: BIPOLAR DISORDER
     Route: 048
     Dates: start: 20001001, end: 20030101
  3. SEROQUEL [Suspect]
     Dosage: 100MG - 600MG
     Route: 048
     Dates: start: 20001001
  4. SEROQUEL [Suspect]
     Dosage: 100MG - 600MG
     Route: 048
     Dates: start: 20001001
  5. CLOZARIL [Concomitant]
  6. HALDOL [Concomitant]
     Dates: start: 19920101, end: 19990101
  7. RISPERDAL [Concomitant]
  8. OLANZAPINE [Concomitant]
     Dates: start: 20020101, end: 20030101
  9. SERTRALINE [Concomitant]
     Indication: MENTAL DISORDER
     Dates: start: 20000101
  10. METHADONE HCL [Concomitant]
     Dates: start: 20050101
  11. NAPROXEN [Concomitant]
  12. LISINOPRIL [Concomitant]
  13. FEXOFENADINE [Concomitant]
  14. METOPROLOL [Concomitant]
  15. ZOLOFT [Concomitant]
  16. LORAZEPAM [Concomitant]
  17. NITRO-DUR [Concomitant]
  18. ASPIRIN [Concomitant]
  19. ACIPHEX [Concomitant]
  20. LIPITOR [Concomitant]
  21. ZOCOR [Concomitant]
  22. NEURONTIN [Concomitant]
  23. PLAVIX [Concomitant]
  24. ZETIA [Concomitant]
  25. PROTONIX [Concomitant]
  26. ALTACE [Concomitant]
  27. DARVOCET [Concomitant]
  28. FLEXERIL [Concomitant]
  29. PREVACID [Concomitant]
  30. NOVOLIN [Concomitant]
  31. XANAX [Concomitant]
  32. CYMBALTA [Concomitant]
  33. COREG CR [Concomitant]
  34. MORPHINE [Concomitant]
  35. APAP TAB [Concomitant]
  36. MECLIZINE [Concomitant]
  37. PIROXICAM [Concomitant]
  38. METOCLOPRAM [Concomitant]
  39. HYDROCHLOROT [Concomitant]
  40. PREDNISONE [Concomitant]

REACTIONS (18)
  - ANGINA PECTORIS [None]
  - ARTERIOSCLEROSIS [None]
  - BRADYCARDIA [None]
  - CARDIAC DISORDER [None]
  - CARDIAC FAILURE CONGESTIVE [None]
  - CHEST PAIN [None]
  - CORONARY ARTERY DISEASE [None]
  - DIVERTICULUM [None]
  - DYSPHAGIA [None]
  - GASTRIC DISORDER [None]
  - GASTRITIS [None]
  - GASTROOESOPHAGEAL REFLUX DISEASE [None]
  - HYPERCHOLESTEROLAEMIA [None]
  - HYPERGLYCAEMIA [None]
  - HYPERLIPIDAEMIA [None]
  - MYOCARDIAL ISCHAEMIA [None]
  - OBESITY [None]
  - TYPE 2 DIABETES MELLITUS [None]
